FAERS Safety Report 23183516 (Version 2)
Quarter: 2024Q1

REPORT INFORMATION
  Report Type: Spontaneous
  Country: US (occurrence: US)
  Receive Date: 20231114
  Receipt Date: 20240109
  Transmission Date: 20240409
  Serious: No
  Sender: FDA-Public Use
  Company Number: US-LUNDBECK-DKLU3068990

PATIENT
  Age: 38 Year
  Sex: Female
  Weight: 98.3 kg

DRUGS (2)
  1. VYEPTI [Suspect]
     Active Substance: EPTINEZUMAB-JJMR
     Indication: Migraine prophylaxis
     Route: 041
     Dates: start: 20220916, end: 20230313
  2. VYEPTI [Suspect]
     Active Substance: EPTINEZUMAB-JJMR
     Route: 041
     Dates: start: 20230803

REACTIONS (4)
  - Lip swelling [Recovered/Resolved]
  - Nasal congestion [Recovered/Resolved]
  - Lacrimation increased [Recovered/Resolved]
  - Cough [Recovered/Resolved]

NARRATIVE: CASE EVENT DATE: 20230803
